FAERS Safety Report 24528068 (Version 1)
Quarter: 2024Q4

REPORT INFORMATION
  Report Type: Spontaneous
  Country: GB (occurrence: GB)
  Receive Date: 20241021
  Receipt Date: 20241021
  Transmission Date: 20250115
  Serious: Yes (Other)
  Sender: AMGEN
  Company Number: GB-AMGEN-GBRSP2024205108

PATIENT
  Age: 52 Year
  Sex: Female

DRUGS (10)
  1. XGEVA [Suspect]
     Active Substance: DENOSUMAB
     Indication: Breast cancer metastatic
     Dosage: UNK UNK, Q4WK
     Route: 065
     Dates: start: 200709, end: 2013
  2. XGEVA [Suspect]
     Active Substance: DENOSUMAB
     Dosage: UNK UNK, Q12WK
     Route: 065
     Dates: start: 2013, end: 2020
  3. XGEVA [Suspect]
     Active Substance: DENOSUMAB
     Dosage: UNK UNK, Q6MO
     Route: 065
     Dates: start: 2020
  4. HERCEPTIN [Suspect]
     Active Substance: TRASTUZUMAB
     Indication: Breast cancer metastatic
     Dosage: UNK UNK, Q3WK
     Route: 065
     Dates: start: 2007, end: 2017
  5. HERCEPTIN [Suspect]
     Active Substance: TRASTUZUMAB
     Dosage: UNK UNK, Q6WK
     Route: 065
     Dates: start: 2017, end: 2022
  6. HERCEPTIN [Suspect]
     Active Substance: TRASTUZUMAB
     Dosage: UNK, Q3MO
     Route: 065
     Dates: start: 2022
  7. DOXORUBICIN [Concomitant]
     Active Substance: DOXORUBICIN
     Indication: Breast cancer metastatic
     Dosage: UNK
     Route: 065
     Dates: start: 2007
  8. CYCLOPHOSPHAMIDE [Concomitant]
     Active Substance: CYCLOPHOSPHAMIDE
     Indication: Breast cancer metastatic
     Dosage: UNK
     Route: 065
     Dates: start: 2007
  9. PACLITAXEL [Concomitant]
     Active Substance: PACLITAXEL
     Indication: Breast cancer metastatic
     Dosage: UNK
     Route: 065
     Dates: start: 2007
  10. ANASTROZOLE [Concomitant]
     Active Substance: ANASTROZOLE
     Indication: Breast cancer metastatic
     Dosage: UNK
     Route: 065
     Dates: start: 2007

REACTIONS (3)
  - Pathological fracture [Recovered/Resolved]
  - Hypophosphatasia [Recovered/Resolved]
  - Off label use [Unknown]
